FAERS Safety Report 8326901-X (Version None)
Quarter: 2012Q2

REPORT INFORMATION
  Report Type: 
  Country: None (occurrence: None)
  Receive Date: 20120501
  Receipt Date: 20120423
  Transmission Date: 20120825
  Serious: Yes (Other)
  Sender: FDA-Public Use
  Company Number: US-CELGENEUS-163-21880-12042927

PATIENT
  Sex: Female
  Weight: 73 kg

DRUGS (2)
  1. REVLIMID [Suspect]
     Dosage: 5 MILLIGRAM
     Route: 048
     Dates: start: 20100701
  2. REVLIMID [Suspect]
     Indication: MULTIPLE MYELOMA
     Dosage: 10 MILLIGRAM
     Route: 048
     Dates: start: 20100127

REACTIONS (17)
  - OEDEMA PERIPHERAL [None]
  - JOINT SWELLING [None]
  - RESPIRATORY TRACT INFECTION [None]
  - NASOPHARYNGITIS [None]
  - PAIN [None]
  - SKIN DISCOLOURATION [None]
  - FREQUENT BOWEL MOVEMENTS [None]
  - FLATULENCE [None]
  - CONTUSION [None]
  - LOWER LIMB FRACTURE [None]
  - FATIGUE [None]
  - PRURITUS [None]
  - DIARRHOEA [None]
  - HAIR GROWTH ABNORMAL [None]
  - ANAEMIA [None]
  - CONSTIPATION [None]
  - DRY SKIN [None]
